FAERS Safety Report 7470873-7 (Version None)
Quarter: 2011Q2

REPORT INFORMATION
  Report Type: 
  Country: None (occurrence: None)
  Receive Date: 20110502
  Receipt Date: 20110420
  Transmission Date: 20111010
  Serious: Yes (Hospitalization)
  Sender: FDA-Public Use
  Company Number: DSA-45481_2011

PATIENT
  Age: 81 Year
  Sex: Female

DRUGS (11)
  1. PREDNISOLONE [Suspect]
     Indication: ASTHMA
     Dosage: DF
  2. ELISOR (ELISOR  - PRAVASTATIN SODIUM) [Suspect]
     Indication: HYPERCHOLESTEROLAEMIA
     Dosage: DF
  3. VENTOLIN [Suspect]
     Indication: PRODUCT USED FOR UNKNOWN INDICATION
     Dosage: DF
  4. RAMIPRIL [Suspect]
     Indication: PRODUCT USED FOR UNKNOWN INDICATION
     Dosage: DF
  5. BUDESONIDE [Suspect]
     Indication: PRODUCT USED FOR UNKNOWN INDICATION
     Dosage: DF OTHER
  6. TERBUTALINE [Concomitant]
  7. DILTIAZEM HCL [Suspect]
     Indication: PRODUCT USED FOR UNKNOWN INDICATION
     Dosage: DF
  8. IPRATROPIUM BROMIDE [Concomitant]
  9. LASILIX (00032601) (LASILIX) [Suspect]
     Indication: PRODUCT USED FOR UNKNOWN INDICATION
     Dosage: DF
  10. PULMICORT [Suspect]
     Indication: PRODUCT USED FOR UNKNOWN INDICATION
     Dosage: DF OTHER
  11. PREVISCAN (00789001) (PREVISCAN  SALBUTAMOL) [Suspect]
     Indication: PRODUCT USED FOR UNKNOWN INDICATION
     Dosage: DF

REACTIONS (4)
  - RESPIRATORY FAILURE [None]
  - CONSTIPATION [None]
  - OEDEMATOUS PANCREATITIS [None]
  - ALANINE AMINOTRANSFERASE INCREASED [None]
